FAERS Safety Report 8951590 (Version 3)
Quarter: 2014Q4

REPORT INFORMATION
  Report Type: Report from Study
  Country: FR (occurrence: FR)
  Receive Date: 20121204
  Receipt Date: 20141030
  Transmission Date: 20150529
  Serious: Yes (Other)
  Sender: FDA-Public Use
  Company Number: FR-PFIZER INC-2012299817

PATIENT
  Age: 65 Year
  Sex: Female
  Weight: 70 kg

DRUGS (18)
  1. DAUNORUBICIN [Suspect]
     Active Substance: DAUNORUBICIN
     Indication: ACUTE MYELOID LEUKAEMIA
     Dosage: 105 MG A DAY
     Route: 042
     Dates: start: 20100514, end: 20100516
  2. LOVENOX [Concomitant]
     Active Substance: ENOXAPARIN SODIUM
     Indication: ANTICOAGULANT THERAPY
     Dosage: 0.4 ML, DAILY
     Route: 058
     Dates: start: 20100705, end: 20100805
  3. PLITICAN [Concomitant]
     Active Substance: ALIZAPRIDE HYDROCHLORIDE
     Indication: PROPHYLAXIS OF NAUSEA AND VOMITING
     Dosage: 30 MG, DAILY
     Route: 048
     Dates: start: 20100729, end: 20100819
  4. ARACYTINE [Suspect]
     Active Substance: CYTARABINE
     Dosage: 1725 MG A DAY (DAY 1 TO DAY 4)
     Route: 042
     Dates: start: 20100730
  5. DAUNORUBICIN [Suspect]
     Active Substance: DAUNORUBICIN
     Dosage: 102.5 MG, DAILY
     Route: 042
     Dates: start: 20100913, end: 20100914
  6. LOXEN [Concomitant]
     Active Substance: NICARDIPINE HYDROCHLORIDE
     Indication: HYPERTENSION
     Dosage: 100 MG, DAILY
     Route: 048
     Dates: start: 20100707, end: 20100823
  7. CHIBRO-CADRON [Concomitant]
     Active Substance: DEXAMETHASONE\NEOMYCIN SULFATE
     Indication: PROPHYLACTIC CHEMOTHERAPY
     Dosage: 4 GTT, EACH EYE DAILY
     Route: 047
     Dates: start: 20100730, end: 20100803
  8. ARACYTINE [Suspect]
     Active Substance: CYTARABINE
     Dosage: 1700  MG, 2X/DAY (DAY1 TO DAY4)
     Route: 042
     Dates: start: 20100913, end: 20100916
  9. EMEND [Concomitant]
     Active Substance: APREPITANT
     Indication: PROPHYLAXIS OF NAUSEA AND VOMITING
     Dosage: 125 MG, DAILY
     Route: 048
     Dates: start: 20100730, end: 20100803
  10. ARACYTINE [Suspect]
     Active Substance: CYTARABINE
     Indication: ACUTE MYELOID LEUKAEMIA
     Dosage: 350 MG, DAILY
     Route: 042
     Dates: start: 20100514, end: 20100521
  11. ARACYTINE [Suspect]
     Active Substance: CYTARABINE
     Dosage: 3500 MG, DAILY
     Route: 042
     Dates: start: 20100529, end: 20100531
  12. DAUNORUBICIN [Suspect]
     Active Substance: DAUNORUBICIN
     Dosage: 62 MG, DAILY
     Route: 042
     Dates: start: 20100529, end: 20100530
  13. HALDOL [Concomitant]
     Active Substance: HALOPERIDOL
     Indication: DEPRESSION
     Dosage: 1 MG, DAILY
     Route: 048
     Dates: start: 20100706, end: 20100823
  14. DAUNORUBICIN [Suspect]
     Active Substance: DAUNORUBICIN
     Dosage: 32 MG, DAILY
     Route: 042
     Dates: start: 20100730
  15. SEROPLEX [Concomitant]
     Active Substance: ESCITALOPRAM OXALATE
     Indication: DEPRESSION
     Dosage: 20 MG, DAILY
     Route: 048
     Dates: start: 20100706, end: 20100823
  16. ZELITREX [Concomitant]
     Active Substance: VALACYCLOVIR HYDROCHLORIDE
     Indication: ANTIVIRAL PROPHYLAXIS
     Dosage: 500 MG, DAILY
     Route: 048
     Dates: start: 20100728, end: 20100823
  17. NOXAFIL [Concomitant]
     Active Substance: POSACONAZOLE
     Indication: ANTIFUNGAL TREATMENT
     Dosage: 600 MG, DAILY
     Route: 048
     Dates: start: 20100728, end: 20100813
  18. ZOPHREN [Concomitant]
     Active Substance: ONDANSETRON
     Indication: PROPHYLAXIS OF NAUSEA AND VOMITING
     Dosage: 16 MG, DAILY
     Route: 048
     Dates: start: 20100730, end: 20100803

REACTIONS (1)
  - Mixed liver injury [Recovered/Resolved]

NARRATIVE: CASE EVENT DATE: 20100730
